FAERS Safety Report 7519538-3 (Version None)
Quarter: 2011Q2

REPORT INFORMATION
  Report Type: 
  Country: None (occurrence: None)
  Receive Date: 20110524
  Receipt Date: 20110509
  Transmission Date: 20111010
  Serious: Yes (Death)
  Sender: FDA-Public Use
  Company Number: AUR-APL-2011-01624

PATIENT
  Age: 61 Year
  Sex: Female

DRUGS (5)
  1. DIAZEPAM [Concomitant]
  2. CITALOPRAM HYDROBROMIDE [Suspect]
     Indication: DEPRESSION
     Dosage: 20MG-DAILY-ORAL
     Route: 048
     Dates: start: 20090927
  3. CLOZAPINE [Suspect]
     Indication: SCHIZOPHRENIA
     Dosage: 200MG-BID-ORAL
     Route: 048
  4. CITALOPRAM [Concomitant]
  5. AMISULPRIDE [Concomitant]

REACTIONS (4)
  - MULTIPLE DRUG OVERDOSE [None]
  - REFUSAL OF TREATMENT BY PATIENT [None]
  - MALAISE [None]
  - VOMITING [None]
